FAERS Safety Report 8925821 (Version 2)
Quarter: 2013Q1

REPORT INFORMATION
  Report Type: Spontaneous
  Country: US (occurrence: US)
  Receive Date: 20121126
  Receipt Date: 20130118
  Transmission Date: 20140127
  Serious: Yes (Hospitalization, Other)
  Sender: FDA-Public Use
  Company Number: PHEH2012US022944

PATIENT
  Age: 49 Year
  Sex: Female
  Weight: 65.31 kg

DRUGS (2)
  1. GILENYA [Suspect]
     Indication: RELAPSING-REMITTING MULTIPLE SCLEROSIS
     Dosage: 0.5 MG, QD
     Route: 048
     Dates: start: 20120611
  2. PREDNISONE [Concomitant]
     Route: 048

REACTIONS (1)
  - Road traffic accident [Recovered/Resolved]
